FAERS Safety Report 23487769 (Version 1)
Quarter: 2024Q1

REPORT INFORMATION
  Report Type: Spontaneous
  Country: US (occurrence: None)
  Receive Date: 20240205
  Receipt Date: 20240205
  Transmission Date: 20240410
  Serious: Yes (Hospitalization)
  Sender: FDA-Public Use
  Company Number: None

PATIENT
  Age: 63 Year
  Sex: Male
  Weight: 72 kg

DRUGS (1)
  1. TENECTEPLASE [Suspect]
     Active Substance: TENECTEPLASE
     Dates: start: 20240127, end: 20240127

REACTIONS (3)
  - Cerebrovascular accident [None]
  - Petechiae [None]
  - Cerebral haemorrhage [None]

NARRATIVE: CASE EVENT DATE: 20240127
